FAERS Safety Report 21973038 (Version 1)
Quarter: 2023Q1

REPORT INFORMATION
  Report Type: Spontaneous
  Country: US (occurrence: None)
  Receive Date: 20230207
  Receipt Date: 20230207
  Transmission Date: 20230418
  Serious: Yes (Hospitalization)
  Sender: FDA-Public Use
  Company Number: None

PATIENT
  Age: 50 Year
  Sex: Female

DRUGS (1)
  1. SUNITINIB [Suspect]
     Active Substance: SUNITINIB
     Dosage: FREQUENCY : TWICE A DAY;?
     Route: 048

REACTIONS (6)
  - Therapy interrupted [None]
  - Oligomenorrhoea [None]
  - Haemorrhage [None]
  - Fall [None]
  - Amnesia [None]
  - Off label use [None]

NARRATIVE: CASE EVENT DATE: 20230207
